FAERS Safety Report 9228261 (Version 1)
Quarter: 2013Q2

REPORT INFORMATION
  Report Type: Spontaneous
  Country: IT (occurrence: IT)
  Receive Date: 20130412
  Receipt Date: 20130412
  Transmission Date: 20140414
  Serious: Yes (Other)
  Sender: FDA-Public Use
  Company Number: IT-ROCHE-1209690

PATIENT
  Sex: Male

DRUGS (8)
  1. METALYSE [Suspect]
     Indication: ACUTE MYOCARDIAL INFARCTION
     Route: 065
     Dates: start: 20070131, end: 20070131
  2. ASPIRIN [Suspect]
     Indication: ACUTE MYOCARDIAL INFARCTION
     Route: 065
  3. ASPIRIN [Suspect]
     Indication: CHEST PAIN
     Route: 065
  4. HEPARIN SULFATE [Suspect]
     Indication: ACUTE MYOCARDIAL INFARCTION
     Dosage: (BOLUS OF 5000 IU AND 1000 IU/H AS A MAINTENANCE
     Route: 042
     Dates: start: 20070131
  5. OMEPRAZOLE [Suspect]
     Indication: ACUTE MYOCARDIAL INFARCTION
     Route: 065
     Dates: start: 20070131
  6. CORTISONE [Suspect]
     Indication: ACUTE MYOCARDIAL INFARCTION
     Route: 065
     Dates: start: 20070131
  7. ATROPINE [Suspect]
     Indication: ACUTE MYOCARDIAL INFARCTION
     Route: 065
     Dates: start: 20070131
  8. AMIODARONE [Concomitant]
     Route: 042

REACTIONS (7)
  - Conduction disorder [Recovered/Resolved]
  - Atrial fibrillation [Recovered/Resolved]
  - Headache [Unknown]
  - Nausea [Unknown]
  - Asthenia [Unknown]
  - Confusional state [Unknown]
  - Vomiting [Unknown]
